FAERS Safety Report 26201427 (Version 2)
Quarter: 2025Q4

REPORT INFORMATION
  Report Type: Report from Study
  Country: EU (occurrence: EU)
  Receive Date: 20251226
  Receipt Date: 20251230
  Transmission Date: 20260117
  Serious: No
  Sender: ABBVIE
  Company Number: EU-ABBVIE-6602602

PATIENT
  Age: 78 Year
  Sex: Male

DRUGS (1)
  1. FOSCARBIDOPA\FOSLEVODOPA [Suspect]
     Active Substance: FOSCARBIDOPA\FOSLEVODOPA
     Indication: Parkinson^s disease
     Dosage: DAILY DOSE: 3.196,8 MG, CRL: 0.49ML/H, CRB: 0.55ML/H, CRH: 0.61ML/H, ED: 0.3ML, LD: 1ML
     Route: 058
     Dates: start: 20240529

REACTIONS (3)
  - Sarcopenia [Not Recovered/Not Resolved]
  - Weight decreased [Not Recovered/Not Resolved]
  - Gastrointestinal tube insertion [Not Recovered/Not Resolved]

NARRATIVE: CASE EVENT DATE: 20251201
